FAERS Safety Report 15358392 (Version 1)
Quarter: 2018Q3

REPORT INFORMATION
  Report Type: Spontaneous
  Country: JP (occurrence: JP)
  Receive Date: 20180906
  Receipt Date: 20180906
  Transmission Date: 20181010
  Serious: Yes (Hospitalization)
  Sender: FDA-Public Use
  Company Number: JP-FERRINGPH-2018FE04780

PATIENT

DRUGS (6)
  1. CORTRIL [Concomitant]
     Active Substance: HYDROCORTISONE
     Dosage: UNK
  2. MINIRINMELT [Suspect]
     Active Substance: DESMOPRESSIN ACETATE
     Indication: DIABETES INSIPIDUS
     Dosage: 300 ?G, DAILY
     Route: 045
     Dates: start: 20180824
  3. DESMOPRESSIN KYOWA [Suspect]
     Active Substance: DESMOPRESSIN
     Indication: PRODUCT USED FOR UNKNOWN INDICATION
     Dosage: 0.15 ML, 2 TIMES DAILY
     Route: 045
  4. THYRADIN S [Concomitant]
     Active Substance: LEVOTHYROXINE SODIUM
     Dosage: UNK
  5. MINIRINMELT [Suspect]
     Active Substance: DESMOPRESSIN ACETATE
     Dosage: 300 ?G, DAILY
     Route: 048
     Dates: start: 201808
  6. MINIRINMELT [Suspect]
     Active Substance: DESMOPRESSIN ACETATE
     Dosage: 360 ?G, DAILY
     Route: 048
     Dates: start: 201704

REACTIONS (6)
  - Drug ineffective [Unknown]
  - Off label use [Unknown]
  - Hyponatraemia [Recovering/Resolving]
  - Pneumonia aspiration [Unknown]
  - Drug effect incomplete [Unknown]
  - Incorrect route of drug administration [Unknown]

NARRATIVE: CASE EVENT DATE: 201808
